FAERS Safety Report 7693026-6 (Version None)
Quarter: 2011Q3

REPORT INFORMATION
  Report Type: 
  Country: None (occurrence: None)
  Receive Date: 20110819
  Receipt Date: 20110805
  Transmission Date: 20111222
  Serious: Yes (Congenital Anomaly)
  Sender: FDA-Public Use
  Company Number: US-UCBSA-037883

PATIENT
  Sex: Male
  Weight: 2.77 kg

DRUGS (2)
  1. VIMPAT [Suspect]
     Indication: EPILEPSY
     Dosage: STOPPED ON 12-14 TH WEEK OF GESTATIONAL AGE
     Route: 064
  2. VIMPAT [Suspect]
     Dosage: BEGAN ON 12-14 TH WEEK OF GESTATIONAL AGE
     Route: 064

REACTIONS (2)
  - CONGENITAL HYDRONEPHROSIS [None]
  - MATERNAL EXPOSURE DURING PREGNANCY [None]
